FAERS Safety Report 18545120 (Version 5)
Quarter: 2021Q4

REPORT INFORMATION
  Report Type: Spontaneous
  Country: US (occurrence: US)
  Receive Date: 20201125
  Receipt Date: 20211122
  Transmission Date: 20220303
  Serious: Yes (Other)
  Sender: FDA-Public Use
  Company Number: US-PFIZER INC-2020209392

PATIENT
  Age: 59 Year
  Sex: Female

DRUGS (1)
  1. INSPRA [Suspect]
     Active Substance: EPLERENONE
     Indication: Cardiac disorder
     Dosage: 25 MG, 1X/DAY
     Route: 048

REACTIONS (2)
  - Cardiac failure [Unknown]
  - Circumstance or information capable of leading to medication error [Unknown]
